FAERS Safety Report 9733001 (Version 1)
Quarter: 2013Q4

REPORT INFORMATION
  Report Type: Spontaneous
  Country: ES (occurrence: ES)
  Receive Date: 20131205
  Receipt Date: 20131205
  Transmission Date: 20140711
  Serious: Yes (Other)
  Sender: FDA-Public Use
  Company Number: ES-PFIZER INC-2013344804

PATIENT
  Age: 49 Year
  Sex: Male

DRUGS (7)
  1. ACOVIL [Suspect]
     Indication: ANGINA PECTORIS
     Dosage: 5 MG, DAILY
     Route: 048
     Dates: start: 20130712
  2. ACETYLSALICYLIC ACID [Concomitant]
     Dosage: UNK
     Dates: start: 201307
  3. SIMVASTATIN [Concomitant]
     Indication: DYSLIPIDAEMIA
     Dosage: UNK
     Dates: start: 201307
  4. TRANGOREX [Concomitant]
     Indication: ARRHYTHMIA
     Dosage: UNK
     Dates: start: 201307
  5. BISOPROLOL [Concomitant]
     Dosage: UNK
     Dates: start: 201307
  6. OMEPRAZOLE [Concomitant]
     Dosage: UNK
     Dates: start: 201307
  7. BALZAK PLUS [Concomitant]
     Dosage: UNK
     Dates: start: 20130912

REACTIONS (1)
  - Chest pain [Recovered/Resolved]
